FAERS Safety Report 4501981-8 (Version None)
Quarter: 2004Q4

REPORT INFORMATION
  Report Type: 
  Country: None (occurrence: None)
  Receive Date: 20041115
  Receipt Date: 20041115
  Transmission Date: 20050328
  Serious: Yes (Disabling)
  Sender: FDA-Public Use
  Company Number: None

PATIENT
  Age: 56 Year
  Sex: Male
  Weight: 95.2554 kg

DRUGS (4)
  1. NARDIL [Suspect]
     Indication: ANXIETY
     Dosage: 75MG DAY ORAL
     Route: 048
     Dates: start: 19860315, end: 20041110
  2. NARDIL [Suspect]
     Indication: DEPRESSION
     Dosage: 75MG DAY ORAL
     Route: 048
     Dates: start: 19860315, end: 20041110
  3. NARDIL [Concomitant]
  4. VALIUM [Concomitant]

REACTIONS (12)
  - DECREASED INTEREST [None]
  - DEPRESSION [None]
  - DISORIENTATION [None]
  - DRUG DEPENDENCE [None]
  - DRUG INEFFECTIVE [None]
  - DRUG WITHDRAWAL SYNDROME [None]
  - IMPAIRED WORK ABILITY [None]
  - LOSS OF EMPLOYMENT [None]
  - PHARMACEUTICAL PRODUCT COMPLAINT [None]
  - SOCIAL FEAR [None]
  - SUICIDAL IDEATION [None]
  - THERAPY NON-RESPONDER [None]
